FAERS Safety Report 7032792-X (Version None)
Quarter: 2010Q4

REPORT INFORMATION
  Report Type: 
  Country: None (occurrence: None)
  Receive Date: 20101007
  Receipt Date: 20091001
  Transmission Date: 20110411
  Serious: Yes (Hospitalization, Other)
  Sender: FDA-Public Use
  Company Number: CA-SANOFI-AVENTIS-200920644GDDC

PATIENT
  Age: 53 Year
  Sex: Male
  Weight: 65.8 kg

DRUGS (14)
  1. DOCETAXEL [Suspect]
     Route: 042
     Dates: start: 20090730, end: 20090730
  2. INVESTIGATIONAL DRUG [Suspect]
     Route: 042
     Dates: start: 20090730, end: 20090730
  3. PREDNISONE [Suspect]
     Route: 048
     Dates: start: 20090730, end: 20090821
  4. ASAPHEN [Concomitant]
     Indication: CARDIOVASCULAR EVENT PROPHYLAXIS
     Dates: start: 20080103
  5. SERAX [Concomitant]
     Indication: INSOMNIA
     Dates: start: 20080213
  6. IMOVANE [Concomitant]
     Indication: INSOMNIA
     Dates: start: 20080131
  7. NAPROSYN [Concomitant]
     Indication: BONE PAIN
     Dates: start: 20080215
  8. LUPRON [Concomitant]
     Dates: start: 20080918
  9. DILAUDID [Concomitant]
     Indication: BONE PAIN
     Dates: start: 20090529
  10. TAMSULOSIN [Concomitant]
  11. ATACAND [Concomitant]
  12. METFORMIN [Concomitant]
     Dates: start: 20030108, end: 20090821
  13. AZATHIOPRINE [Concomitant]
     Dates: start: 20060428
  14. PARACETAMOL [Concomitant]
     Indication: BONE PAIN
     Dates: start: 20090708

REACTIONS (2)
  - HYPERCALCAEMIA [None]
  - HYPERGLYCAEMIA [None]
